FAERS Safety Report 22220179 (Version 1)
Quarter: 2023Q2

REPORT INFORMATION
  Report Type: Spontaneous
  Country: FR (occurrence: FR)
  Receive Date: 20230417
  Receipt Date: 20230417
  Transmission Date: 20230722
  Serious: Yes (Hospitalization)
  Sender: FDA-Public Use
  Company Number: None

PATIENT
  Age: 73 Year
  Sex: Male
  Weight: 85 kg

DRUGS (1)
  1. ALLOPURINOL [Suspect]
     Active Substance: ALLOPURINOL
     Indication: Gout
     Dosage: 1 DOSAGE FORM, 1 TOTAL
     Route: 065
     Dates: start: 20190329

REACTIONS (1)
  - Pseudolymphoma [Recovering/Resolving]

NARRATIVE: CASE EVENT DATE: 20210101
